FAERS Safety Report 16982537 (Version 1)
Quarter: 2019Q4

REPORT INFORMATION
  Report Type: Spontaneous
  Country: SK (occurrence: SK)
  Receive Date: 20191101
  Receipt Date: 20191101
  Transmission Date: 20200122
  Serious: Yes (Death)
  Sender: FDA-Public Use
  Company Number: SK-ROCHE-2450645

PATIENT
  Sex: Male

DRUGS (10)
  1. ESBRIET [Suspect]
     Active Substance: PIRFENIDONE
     Indication: IDIOPATHIC PULMONARY FIBROSIS
     Dosage: 3X3 TIMES DAILY.
     Route: 048
     Dates: start: 20160610, end: 201703
  2. FENTANYL. [Concomitant]
     Active Substance: FENTANYL
     Route: 065
     Dates: start: 20180130
  3. NEUROL [ALPRAZOLAM] [Concomitant]
     Route: 065
     Dates: start: 201801
  4. VEROSPIRON [Concomitant]
     Active Substance: SPIRONOLACTONE
     Route: 048
     Dates: start: 201801
  5. MABRON [Concomitant]
     Route: 030
     Dates: start: 201801
  6. NOVALGIN (METAMIZOLE SODIUM) [Concomitant]
     Active Substance: METAMIZOLE SODIUM
     Dosage: EVERY 12 HOURS.
     Route: 042
     Dates: start: 201801
  7. ESBRIET [Suspect]
     Active Substance: PIRFENIDONE
     Dosage: TITRATED DOWN TO 3X1 CAPSULES DAILY.
     Route: 048
     Dates: start: 20180122
  8. LAGOSA [Concomitant]
     Active Substance: DIETARY SUPPLEMENT\HERBALS\MILK THISTLE
     Route: 065
     Dates: start: 201801
  9. CALTRATE [CALCIUM CARBONATE;COLECALCIFEROL] [Concomitant]
     Dosage: 600 MG /400 IU D3 VITAMIN DAILY.
     Route: 065
     Dates: start: 201801
  10. FUROSEMID [FUROSEMIDE] [Concomitant]
     Active Substance: FUROSEMIDE
     Route: 042
     Dates: start: 201801

REACTIONS (1)
  - Death [Fatal]
